FAERS Safety Report 16528778 (Version 1)
Quarter: 2019Q3

REPORT INFORMATION
  Report Type: Spontaneous
  Country: US (occurrence: US)
  Receive Date: 20190703
  Receipt Date: 20190703
  Transmission Date: 20191004
  Serious: Yes (Other)
  Sender: FDA-Public Use
  Company Number: US-SHIRE-US201921061

PATIENT
  Age: 28 Year
  Sex: Female
  Weight: 99.77 kg

DRUGS (4)
  1. VYVANSE [Suspect]
     Active Substance: LISDEXAMFETAMINE DIMESYLATE
     Dosage: 40 MILLIGRAM, 1X/DAY:QD
     Route: 048
     Dates: start: 20190625
  2. VYVANSE [Suspect]
     Active Substance: LISDEXAMFETAMINE DIMESYLATE
     Indication: ATTENTION DEFICIT/HYPERACTIVITY DISORDER
     Dosage: 30 MILLIGRAM, 1X/DAY:QD
     Route: 048
     Dates: start: 201905
  3. VYVANSE [Suspect]
     Active Substance: LISDEXAMFETAMINE DIMESYLATE
     Dosage: 40 MILLIGRAM, 1X/DAY:QD
     Route: 048
     Dates: start: 20190617
  4. SUMATRIPTAN. [Concomitant]
     Active Substance: SUMATRIPTAN
     Indication: MIGRAINE

REACTIONS (8)
  - Colitis [Recovered/Resolved]
  - Rectal haemorrhage [Recovered/Resolved]
  - Gastrointestinal infection [Recovered/Resolved]
  - Abdominal pain upper [Recovered/Resolved]
  - Condition aggravated [Recovered/Resolved]
  - Diarrhoea [Recovered/Resolved]
  - Inappropriate schedule of product administration [Recovered/Resolved]
  - Therapeutic product effect decreased [Recovered/Resolved]

NARRATIVE: CASE EVENT DATE: 2019
